FAERS Safety Report 10241038 (Version 2)
Quarter: 2014Q2

REPORT INFORMATION
  Report Type: Spontaneous
  Country: JP (occurrence: JP)
  Receive Date: 20140617
  Receipt Date: 20140617
  Transmission Date: 20141212
  Serious: Yes (Death)
  Sender: FDA-Public Use
  Company Number: JP-MALLINCKRODT-T201401147

PATIENT
  Age: 61 Year
  Sex: Male
  Weight: 46.9 kg

DRUGS (9)
  1. METHADONE [Suspect]
     Indication: CANCER PAIN
     Dosage: 5 MG, (15 MG DAILY DOSE)
     Route: 048
     Dates: start: 20130917, end: 20130923
  2. METHADONE [Suspect]
     Dosage: 10 MG, (20 MG DAILY DOSE)
     Route: 048
     Dates: start: 20130924, end: 20131027
  3. OXYCONTIN [Concomitant]
     Indication: PRODUCT USED FOR UNKNOWN INDICATION
     Dosage: 400 MG, UNK
     Route: 048
     Dates: end: 20130916
  4. OXYCONTIN [Concomitant]
     Dosage: 360 MG, UNK
     Route: 048
     Dates: start: 20130917, end: 20130923
  5. OXYCONTIN [Concomitant]
     Dosage: 320 MG, UNK
     Route: 048
     Dates: start: 20130924, end: 20130926
  6. OXYCONTIN [Concomitant]
     Dosage: 280 MG, UNK
     Route: 048
     Dates: start: 20130927, end: 20131016
  7. FENTOS [Concomitant]
     Indication: PRODUCT USED FOR UNKNOWN INDICATION
     Dosage: 12 MG, UNK
     Route: 062
     Dates: end: 20131016
  8. CELECOX [Concomitant]
     Indication: PRODUCT USED FOR UNKNOWN INDICATION
     Dosage: 400 MG, UNK
     Route: 048
     Dates: end: 20131027
  9. HARNAL [Concomitant]
     Indication: PRODUCT USED FOR UNKNOWN INDICATION
     Dosage: 0.2 MG, UNK
     Route: 048
     Dates: end: 20131027

REACTIONS (3)
  - Rectal cancer [Fatal]
  - Insomnia [Not Recovered/Not Resolved]
  - Oedema [Not Recovered/Not Resolved]
